FAERS Safety Report 7435106-6 (Version None)
Quarter: 2011Q2

REPORT INFORMATION
  Report Type: 
  Country: None (occurrence: None)
  Receive Date: 20110415
  Receipt Date: 20110330
  Transmission Date: 20111010
  Serious: Yes (Hospitalization)
  Sender: FDA-Public Use
  Company Number: DSA_45158_2011

PATIENT
  Sex: Female

DRUGS (4)
  1. SOLIRIS [Suspect]
     Indication: PAROXYSMAL NOCTURNAL HAEMOGLOBINURIA
     Dosage: SEE IMAGE
     Route: 042
     Dates: start: 20071026, end: 20071113
  2. SOLIRIS [Suspect]
     Indication: PAROXYSMAL NOCTURNAL HAEMOGLOBINURIA
     Dosage: SEE IMAGE
     Route: 042
     Dates: start: 20110225
  3. LORAZEPAM [Suspect]
     Indication: PRODUCT USED FOR UNKNOWN INDICATION
     Dosage: NOT THE PRESCRIBED AMOUNT
  4. DILAUDID [Suspect]
     Indication: PRODUCT USED FOR UNKNOWN INDICATION
     Dosage: NOT THE PRESCRIBED AMOUNT

REACTIONS (3)
  - PAIN [None]
  - OVERDOSE [None]
  - VOMITING [None]
